FAERS Safety Report 13019473 (Version 1)
Quarter: 2016Q4

REPORT INFORMATION
  Report Type: Spontaneous
  Country: US (occurrence: US)
  Receive Date: 20161212
  Receipt Date: 20161212
  Transmission Date: 20170207
  Serious: No
  Sender: FDA-Public Use
  Company Number: US-ROCHE-1741104

PATIENT
  Age: 73 Year
  Sex: Female
  Weight: 51.3 kg

DRUGS (19)
  1. ACTEMRA [Suspect]
     Active Substance: TOCILIZUMAB
     Indication: RHEUMATOID ARTHRITIS
     Dosage: STOPPED ABOUT 2 MONTHS AGO
     Route: 042
     Dates: start: 2015
  2. REMICADE [Suspect]
     Active Substance: INFLIXIMAB
     Indication: RHEUMATOID ARTHRITIS
     Route: 065
  3. LEVOTHYROXINE. [Concomitant]
     Active Substance: LEVOTHYROXINE
     Route: 065
  4. FOLIC ACID. [Concomitant]
     Active Substance: FOLIC ACID
     Route: 065
  5. OMEPRAZOLE. [Concomitant]
     Active Substance: OMEPRAZOLE
     Route: 065
  6. SIMPONI [Suspect]
     Active Substance: GOLIMUMAB
     Indication: RHEUMATOID ARTHRITIS
     Route: 065
  7. ACTEMRA [Suspect]
     Active Substance: TOCILIZUMAB
     Indication: RHEUMATOID ARTHRITIS
     Dosage: STARTED 2 MONTHS AGO
     Route: 058
     Dates: start: 201605
  8. ETODOLAC. [Concomitant]
     Active Substance: ETODOLAC
     Route: 065
  9. FENTANYL. [Concomitant]
     Active Substance: FENTANYL
     Route: 065
  10. PREDNISONE. [Concomitant]
     Active Substance: PREDNISONE
     Indication: MUSCULOSKELETAL STIFFNESS
     Route: 065
  11. METHOTREXATE. [Concomitant]
     Active Substance: METHOTREXATE
     Dosage: 6 TABLETS
     Route: 065
  12. OXYCODONE [Concomitant]
     Active Substance: OXYCODONE
     Indication: BACK PAIN
     Dosage: AS NEEDED UP TO 6 TIMES A DAY
     Route: 065
  13. VIIBRYD [Concomitant]
     Active Substance: VILAZODONE HYDROCHLORIDE
     Route: 065
  14. ACTEMRA [Suspect]
     Active Substance: TOCILIZUMAB
     Route: 058
  15. ACTEMRA [Suspect]
     Active Substance: TOCILIZUMAB
     Dosage: STARTED 2 MONTHS AGO?162MG/0.9ML
     Route: 058
     Dates: start: 20160615, end: 20160809
  16. DIAZEPAM. [Concomitant]
     Active Substance: DIAZEPAM
     Route: 048
  17. BUPROPION HCL [Concomitant]
     Active Substance: BUPROPION HYDROCHLORIDE
     Route: 065
  18. FERROUS SULFATE. [Concomitant]
     Active Substance: FERROUS SULFATE
     Route: 048
  19. ACICLOVIR [Concomitant]
     Active Substance: ACYCLOVIR
     Route: 065

REACTIONS (15)
  - Osteoarthritis [Not Recovered/Not Resolved]
  - Rash pruritic [Recovered/Resolved]
  - Condition aggravated [Unknown]
  - Pruritus [Recovered/Resolved]
  - Ill-defined disorder [Recovered/Resolved]
  - Injection site pruritus [Recovered/Resolved]
  - Joint effusion [Recovered/Resolved]
  - Drug ineffective [Unknown]
  - Rheumatoid arthritis [Recovered/Resolved]
  - Joint effusion [Recovering/Resolving]
  - Wrong technique in product usage process [Unknown]
  - Rash [Unknown]
  - Swelling [Recovering/Resolving]
  - Fluid retention [Recovering/Resolving]
  - Injection site erythema [Unknown]

NARRATIVE: CASE EVENT DATE: 20160615
